FAERS Safety Report 5489160-1 (Version None)
Quarter: 2007Q3

REPORT INFORMATION
  Report Type: 
  Country: None (occurrence: None)
  Receive Date: 20070925
  Receipt Date: 20070614
  Transmission Date: 20080115
  Serious: No
  Sender: FDA-Public Use
  Company Number: 2007US001236

PATIENT
  Age: 70 Year
  Sex: Female

DRUGS (4)
  1. VESICARE [Suspect]
     Indication: POLLAKIURIA
     Dosage: 5 MG, UID/QD, ORAL  :  10 MG
     Route: 048
     Dates: start: 20070406
  2. NORVASC [Concomitant]
  3. COZAAR [Concomitant]
  4. ASTELIN [Concomitant]

REACTIONS (1)
  - DRUG INEFFECTIVE [None]
